FAERS Safety Report 25071242 (Version 1)
Quarter: 2025Q1

REPORT INFORMATION
  Report Type: Spontaneous
  Country: FR (occurrence: FR)
  Receive Date: 20250312
  Receipt Date: 20250312
  Transmission Date: 20250409
  Serious: Yes (Hospitalization)
  Sender: MYLAN
  Company Number: None

PATIENT
  Age: 77 Year
  Sex: Female
  Weight: 73 kg

DRUGS (3)
  1. LANSOPRAZOLE [Interacting]
     Active Substance: LANSOPRAZOLE
     Indication: Prophylaxis against gastrointestinal ulcer
     Dosage: 30 MILLIGRAM, QD
     Dates: start: 20241230
  2. AMOXICILLIN\CLAVULANIC ACID [Interacting]
     Active Substance: AMOXICILLIN\CLAVULANIC ACID
     Indication: Pneumonia aspiration
     Dosage: 3 GRAM, QD
     Dates: start: 20250115, end: 20250121
  3. AMOXICILLIN\CLAVULANIC ACID [Interacting]
     Active Substance: AMOXICILLIN\CLAVULANIC ACID
     Dosage: 3 GRAM, QD
     Dates: start: 20250129, end: 20250130

REACTIONS (2)
  - Clostridium difficile colitis [Not Recovered/Not Resolved]
  - Drug interaction [Unknown]

NARRATIVE: CASE EVENT DATE: 20250129
